FAERS Safety Report 5090278-6 (Version None)
Quarter: 2006Q3

REPORT INFORMATION
  Report Type: 
  Country: None (occurrence: None)
  Receive Date: 20060828
  Receipt Date: 20060703
  Transmission Date: 20061208
  Serious: No
  Sender: FDA-Public Use
  Company Number: US-GLAXOSMITHKLINE-A0611008A

PATIENT
  Age: 21 Year
  Sex: Female

DRUGS (5)
  1. WELLBUTRIN XL [Suspect]
     Indication: DEPRESSION
     Dosage: 150MG PER DAY
     Route: 048
     Dates: start: 20060626
  2. XANAX [Concomitant]
  3. TEMAZEPAM [Concomitant]
  4. TRAZODONE HCL [Concomitant]
  5. PROPOXYPHENE HYDROCHLORIDE [Concomitant]

REACTIONS (9)
  - BALANCE DISORDER [None]
  - CONFUSIONAL STATE [None]
  - DIPLOPIA [None]
  - DIZZINESS [None]
  - FEELING DRUNK [None]
  - HEADACHE [None]
  - NAUSEA [None]
  - PAIN IN JAW [None]
  - VISION BLURRED [None]
